FAERS Safety Report 20620037 (Version 1)
Quarter: 2022Q1

REPORT INFORMATION
  Report Type: Spontaneous
  Country: US (occurrence: None)
  Receive Date: 20220321
  Receipt Date: 20220321
  Transmission Date: 20220423
  Serious: No
  Sender: FDA-Public Use
  Company Number: None

PATIENT
  Sex: Male

DRUGS (1)
  1. JULUCA [Suspect]
     Active Substance: DOLUTEGRAVIR SODIUM\RILPIVIRINE HYDROCHLORIDE
     Indication: HIV infection
     Dosage: 50/25MG DAILY BY MOUTH? ?
     Route: 048
     Dates: start: 20200218

REACTIONS (4)
  - Pain [None]
  - Presyncope [None]
  - Haematemesis [None]
  - Intervertebral disc protrusion [None]
